FAERS Safety Report 24795748 (Version 2)
Quarter: 2025Q1

REPORT INFORMATION
  Report Type: Report from Study
  Country: US (occurrence: US)
  Receive Date: 20250101
  Receipt Date: 20250103
  Transmission Date: 20250409
  Serious: Yes (Hospitalization)
  Sender: SUNOVION
  Company Number: US-SMPA-2024SPA006720

PATIENT

DRUGS (2)
  1. ORGOVYX [Suspect]
     Active Substance: RELUGOLIX
     Indication: Prostate cancer
     Dosage: 120 MG, QD
     Route: 048
     Dates: start: 20241102
  2. ERLEADA [Concomitant]
     Active Substance: APALUTAMIDE
     Indication: Prostate cancer
     Dosage: 240 MG, QD
     Dates: start: 20241102

REACTIONS (3)
  - Cardioversion [Unknown]
  - Hot flush [Unknown]
  - Incorrect dose administered [Unknown]
